FAERS Safety Report 16446644 (Version 1)
Quarter: 2019Q2

REPORT INFORMATION
  Report Type: Report from Study
  Country: FR (occurrence: FR)
  Receive Date: 20190618
  Receipt Date: 20190618
  Transmission Date: 20190711
  Serious: Yes (Death, Other)
  Sender: FDA-Public Use
  Company Number: FR-MYLANLABS-2019M1056065

PATIENT

DRUGS (1)
  1. TENOFOVIR [Suspect]
     Active Substance: TENOFOVIR
     Indication: HEPATITIS B
     Dosage: UNK
     Route: 064
     Dates: start: 201110, end: 20111222

REACTIONS (2)
  - Foetal exposure during pregnancy [Recovered/Resolved]
  - Mitochondrial cytopathy [Fatal]

NARRATIVE: CASE EVENT DATE: 201110
